FAERS Safety Report 17473703 (Version 1)
Quarter: 2020Q1

REPORT INFORMATION
  Report Type: Spontaneous
  Country: US (occurrence: US)
  Receive Date: 20200228
  Receipt Date: 20200228
  Transmission Date: 20200409
  Serious: Yes (Death, Hospitalization)
  Sender: FDA-Public Use
  Company Number: US-VERTEX PHARMACEUTICALS-2020-001567

PATIENT
  Sex: Female

DRUGS (14)
  1. TRIKAFTA [Suspect]
     Active Substance: ELEXACAFTOR\IVACAFTOR\TEZACAFTOR
     Indication: CYSTIC FIBROSIS
     Dosage: 2 TABLETS OF 100MG ELEXACAFTOR/ 50 MG TEZACAFTOR/ 75 MG IVACAFTOR AM; 1 TABLET 150 MG IVACAFTOR PM
     Route: 048
     Dates: start: 20191127, end: 20200221
  2. AZITHROMYCIN ANHYDROUS. [Concomitant]
     Active Substance: AZITHROMYCIN ANHYDROUS
  3. PULMOZYME [Concomitant]
     Active Substance: DORNASE ALFA
  4. CREON [Concomitant]
     Active Substance: PANCRELIPASE AMYLASE\PANCRELIPASE LIPASE\PANCRELIPASE PROTEASE
  5. FUROSEMIDE. [Concomitant]
     Active Substance: FUROSEMIDE
  6. SPIRONOLACTONE. [Concomitant]
     Active Substance: SPIRONOLACTONE
  7. CYPROHEPTADINE. [Concomitant]
     Active Substance: CYPROHEPTADINE
  8. FAMOTIDINE. [Concomitant]
     Active Substance: FAMOTIDINE
  9. LORAZEPAM. [Concomitant]
     Active Substance: LORAZEPAM
  10. URSODIOL. [Concomitant]
     Active Substance: URSODIOL
  11. SODIUM CHLORIDE. [Concomitant]
     Active Substance: SODIUM CHLORIDE
  12. TOUJEO MAX [Concomitant]
     Active Substance: INSULIN GLARGINE
  13. BUPROPION. [Concomitant]
     Active Substance: BUPROPION
  14. TOBRAMYCIN. [Concomitant]
     Active Substance: TOBRAMYCIN

REACTIONS (3)
  - Hepatic function abnormal [Fatal]
  - Influenza [Fatal]
  - Renal impairment [Fatal]

NARRATIVE: CASE EVENT DATE: 2020
